FAERS Safety Report 6924194-9 (Version None)
Quarter: 2010Q3

REPORT INFORMATION
  Report Type: 
  Country: None (occurrence: None)
  Receive Date: 20100812
  Receipt Date: 20100812
  Transmission Date: 20110219
  Serious: Yes (Other)
  Sender: FDA-Public Use
  Company Number: None

PATIENT
  Sex: Female
  Weight: 55.2 kg

DRUGS (2)
  1. GEMCITABINE [Suspect]
     Indication: OVARIAN CANCER
     Dosage: 1620MG Q 15 DAYS IV DRIP
     Route: 041
     Dates: start: 20100114, end: 20100811
  2. CARBOPLATIN [Suspect]
     Indication: OVARIAN CANCER
     Dosage: 311MG Q 15 DAYS IV DRIP
     Route: 041
     Dates: start: 20100114, end: 20100811

REACTIONS (2)
  - LEUKOPENIA [None]
  - NEUTROPENIA [None]
